FAERS Safety Report 19405034 (Version 1)
Quarter: 2021Q2

REPORT INFORMATION
  Report Type: Spontaneous
  Country: AT (occurrence: AT)
  Receive Date: 20210611
  Receipt Date: 20210611
  Transmission Date: 20210717
  Serious: Yes (Other)
  Sender: FDA-Public Use
  Company Number: AT-BAYER-2021-150878

PATIENT
  Age: 75 Year
  Sex: Male

DRUGS (1)
  1. CIPROFLOXACIN MONOHYDROCHLORIDE [Suspect]
     Active Substance: CIPROFLOXACIN
     Indication: ENTERITIS INFECTIOUS
     Dosage: 1 DF, BID
     Dates: start: 202002

REACTIONS (7)
  - Paraparesis [Unknown]
  - Gait inability [Unknown]
  - Myalgia [Unknown]
  - Condition aggravated [Unknown]
  - Back pain [Unknown]
  - Tendon pain [Unknown]
  - Muscular weakness [Not Recovered/Not Resolved]

NARRATIVE: CASE EVENT DATE: 20200218
